FAERS Safety Report 9042664 (Version 1)
Quarter: 2013Q1

REPORT INFORMATION
  Report Type: Report from Study
  Country: US (occurrence: US)
  Receive Date: 20130129
  Receipt Date: 20130129
  Transmission Date: 20140127
  Serious: No
  Sender: FDA-Public Use
  Company Number: US-ABBOTT-12P-163-0904967-00

PATIENT
  Age: 40 Year
  Sex: Female

DRUGS (2)
  1. HUMIRA 40 MG/0.8 ML PEN [Suspect]
     Indication: PSORIASIS
     Dosage: ONCE A MONTH OR EVERY 3 WEEKS; OFF AND ON
     Dates: start: 2009, end: 201109
  2. BED TREATMENT (PHOTO THERAPY) [Concomitant]
     Indication: PSORIASIS

REACTIONS (2)
  - Pharyngitis streptococcal [Not Recovered/Not Resolved]
  - Infection [Not Recovered/Not Resolved]
